FAERS Safety Report 23016056 (Version 5)
Quarter: 2023Q4

REPORT INFORMATION
  Report Type: Spontaneous
  Country: CA (occurrence: CA)
  Receive Date: 20231002
  Receipt Date: 20231130
  Transmission Date: 20240110
  Serious: Yes (Hospitalization, Other)
  Sender: FDA-Public Use
  Company Number: CA-PFIZER INC-202300070439

PATIENT
  Age: 54 Year
  Sex: Female

DRUGS (5)
  1. RUXIENCE [Suspect]
     Active Substance: RITUXIMAB-PVVR
     Indication: Rheumatoid arthritis
     Dosage: 1000 MG, DAY 1 AND 15
     Route: 042
     Dates: start: 20230214
  2. RUXIENCE [Suspect]
     Active Substance: RITUXIMAB-PVVR
     Dosage: 1000 MG, DAY 1 AND 15
     Route: 042
     Dates: start: 20230214
  3. RUXIENCE [Suspect]
     Active Substance: RITUXIMAB-PVVR
     Dosage: 1000 MG, DAY 1 AND 15
     Route: 042
     Dates: start: 20230316
  4. RUXIENCE [Suspect]
     Active Substance: RITUXIMAB-PVVR
     Dosage: 1000 MG, DAY 1 AND 15
     Route: 042
     Dates: start: 20230829
  5. OXYCONTIN [Concomitant]
     Active Substance: OXYCODONE HYDROCHLORIDE
     Indication: Ankle fracture
     Dosage: 10 MG
     Route: 065

REACTIONS (31)
  - Myocardial infarction [Unknown]
  - Gait disturbance [Unknown]
  - Mobility decreased [Unknown]
  - Skin mass [Unknown]
  - Cardiac arrest [Unknown]
  - Pneumonia aspiration [Unknown]
  - Coma [Unknown]
  - Arthritis infective [Recovered/Resolved]
  - Condition aggravated [Recovered/Resolved]
  - Diverticulitis [Unknown]
  - Therapeutic response shortened [Unknown]
  - Headache [Not Recovered/Not Resolved]
  - Photophobia [Unknown]
  - Pyrexia [Unknown]
  - Cough [Not Recovered/Not Resolved]
  - Nasal congestion [Not Recovered/Not Resolved]
  - Illness [Recovered/Resolved]
  - Wound infection [Recovered/Resolved]
  - Infusion site infection [Recovered/Resolved]
  - Pain in extremity [Not Recovered/Not Resolved]
  - Joint swelling [Unknown]
  - Condition aggravated [Unknown]
  - Vomiting [Unknown]
  - Diarrhoea [Unknown]
  - Hypoaesthesia [Unknown]
  - Pain [Unknown]
  - Skin infection [Recovered/Resolved]
  - Influenza [Unknown]
  - Localised infection [Recovered/Resolved]
  - Joint injury [Unknown]
  - Malaise [Unknown]

NARRATIVE: CASE EVENT DATE: 20230101
